FAERS Safety Report 5867649-0 (Version None)
Quarter: 2008Q3

REPORT INFORMATION
  Report Type: 
  Country: None (occurrence: None)
  Receive Date: 20080902
  Receipt Date: 20080824
  Transmission Date: 20090109
  Serious: Yes (Other)
  Sender: FDA-Public Use
  Company Number: KW-JNJCH-2008022181

PATIENT
  Sex: Male

DRUGS (1)
  1. BENADRYL [Suspect]
     Indication: POSTNASAL DRIP
     Dosage: TEXT:UNSPECIFIED
     Route: 048

REACTIONS (3)
  - DYSURIA [None]
  - ERECTILE DYSFUNCTION [None]
  - ORGASM ABNORMAL [None]
